FAERS Safety Report 16059024 (Version 3)
Quarter: 2019Q2

REPORT INFORMATION
  Report Type: Spontaneous
  Country: FR (occurrence: FR)
  Receive Date: 20190311
  Receipt Date: 20190422
  Transmission Date: 20190711
  Serious: Yes (Other)
  Sender: FDA-Public Use
  Company Number: FR-SA-2019SA065967

PATIENT
  Sex: Female

DRUGS (1)
  1. CLEXANE [Suspect]
     Active Substance: ENOXAPARIN SODIUM

REACTIONS (4)
  - Exposure via blood [Unknown]
  - Accidental exposure to product [Unknown]
  - Suspected transmission of an infectious agent via product [Unknown]
  - Device use issue [Unknown]

NARRATIVE: CASE EVENT DATE: 20190221
